FAERS Safety Report 7581576-2 (Version None)
Quarter: 2011Q2

REPORT INFORMATION
  Report Type: 
  Country: None (occurrence: None)
  Receive Date: 20110629
  Receipt Date: 20110624
  Transmission Date: 20111010
  Serious: Yes (Death)
  Sender: FDA-Public Use
  Company Number: PHHY2011BR56398

PATIENT
  Sex: Male

DRUGS (1)
  1. ENABLEX [Suspect]
     Dosage: 7.5 MG, UNK
     Route: 048

REACTIONS (3)
  - INFECTION [None]
  - BLADDER CANCER [None]
  - DISEASE PROGRESSION [None]
